FAERS Safety Report 7388608-5 (Version None)
Quarter: 2011Q2

REPORT INFORMATION
  Report Type: 
  Country: None (occurrence: None)
  Receive Date: 20110401
  Receipt Date: 20110324
  Transmission Date: 20111010
  Serious: Yes (Other)
  Sender: FDA-Public Use
  Company Number: DE-PFIZER INC-2011066570

PATIENT
  Age: 12 Year
  Sex: Female

DRUGS (2)
  1. RAPAMUNE [Suspect]
     Indication: EWING'S SARCOMA
     Dosage: 2 MG, UNK
     Dates: start: 20101210, end: 20101231
  2. TEMODAL [Concomitant]
     Dosage: UNK
     Dates: start: 20110301

REACTIONS (2)
  - METASTASES TO PITUITARY GLAND [None]
  - ABDOMINAL PAIN UPPER [None]
